FAERS Safety Report 25963701 (Version 1)
Quarter: 2025Q4

REPORT INFORMATION
  Report Type: Spontaneous
  Country: EU (occurrence: EU)
  Receive Date: 20251027
  Receipt Date: 20251027
  Transmission Date: 20260117
  Serious: Yes (Other)
  Sender: BRISTOL-MYERS SQUIBB COMPANY
  Company Number: EU-BRISTOL-MYERS SQUIBB COMPANY-2025-144810

PATIENT

DRUGS (2)
  1. SOTYKTU [Suspect]
     Active Substance: DEUCRAVACITINIB
     Indication: Psoriasis
     Dosage: SINCE SEPTEMBER 25
  2. SOTYKTU [Suspect]
     Active Substance: DEUCRAVACITINIB
     Indication: Systemic lupus erythematosus

REACTIONS (1)
  - Encephalitis [Unknown]
